FAERS Safety Report 6361524-3 (Version None)
Quarter: 2009Q3

REPORT INFORMATION
  Report Type: 
  Country: None (occurrence: None)
  Receive Date: 20090918
  Receipt Date: 20090910
  Transmission Date: 20100115
  Serious: Yes (Hospitalization)
  Sender: FDA-Public Use
  Company Number: ES-ABBOTT-09P-144-0596362-00

PATIENT
  Age: 69 Year
  Sex: Female

DRUGS (5)
  1. DEPAKENE [Suspect]
     Indication: CONVULSION
     Route: 048
     Dates: start: 20090828, end: 20090830
  2. DEPAKENE [Suspect]
     Dates: start: 20090901
  3. POTASSIUM CHLORIDE [Concomitant]
     Indication: DRUG USE FOR UNKNOWN INDICATION
     Route: 048
  4. SODIUM [Concomitant]
     Indication: DRUG USE FOR UNKNOWN INDICATION
     Route: 048
  5. CORTICOIDS [Concomitant]
     Indication: DRUG USE FOR UNKNOWN INDICATION

REACTIONS (4)
  - DRUG LEVEL ABOVE THERAPEUTIC [None]
  - GAIT DISTURBANCE [None]
  - SOMNOLENCE [None]
  - SPEECH DISORDER [None]
